FAERS Safety Report 24063771 (Version 2)
Quarter: 2025Q1

REPORT INFORMATION
  Report Type: Spontaneous
  Country: US (occurrence: US)
  Receive Date: 20240709
  Receipt Date: 20250210
  Transmission Date: 20250408
  Serious: No
  Sender: ELI LILLY AND COMPANY
  Company Number: US-ELI_LILLY_AND_COMPANY-US202407002865

PATIENT
  Age: 61 Year
  Sex: Male

DRUGS (17)
  1. ZEPBOUND [Suspect]
     Active Substance: TIRZEPATIDE
     Indication: Product used for unknown indication
     Dosage: 2.5 MG, WEEKLY (1/W)
     Route: 065
  2. ZEPBOUND [Suspect]
     Active Substance: TIRZEPATIDE
     Indication: Product used for unknown indication
     Dosage: 2.5 MG, WEEKLY (1/W)
     Route: 065
  3. ZEPBOUND [Suspect]
     Active Substance: TIRZEPATIDE
     Indication: Product used for unknown indication
     Dosage: 2.5 MG, WEEKLY (1/W)
     Route: 065
  4. ZEPBOUND [Suspect]
     Active Substance: TIRZEPATIDE
     Indication: Product used for unknown indication
     Dosage: 2.5 MG, WEEKLY (1/W)
     Route: 065
  5. ZEPBOUND [Suspect]
     Active Substance: TIRZEPATIDE
     Indication: Product used for unknown indication
     Dosage: 2.5 MG, WEEKLY (1/W)
     Route: 065
  6. ZEPBOUND [Suspect]
     Active Substance: TIRZEPATIDE
     Dosage: 5 MG, WEEKLY (1/W)
     Route: 065
  7. ZEPBOUND [Suspect]
     Active Substance: TIRZEPATIDE
     Dosage: 5 MG, WEEKLY (1/W)
     Route: 065
  8. ZEPBOUND [Suspect]
     Active Substance: TIRZEPATIDE
     Dosage: 5 MG, WEEKLY (1/W)
     Route: 065
  9. ZEPBOUND [Suspect]
     Active Substance: TIRZEPATIDE
     Dosage: 5 MG, WEEKLY (1/W)
     Route: 065
  10. ZEPBOUND [Suspect]
     Active Substance: TIRZEPATIDE
     Dosage: 5 MG, WEEKLY (1/W)
     Route: 065
  11. ZEPBOUND [Suspect]
     Active Substance: TIRZEPATIDE
     Dosage: 5 MG, WEEKLY (1/W)
     Route: 065
  12. ZEPBOUND [Suspect]
     Active Substance: TIRZEPATIDE
     Dosage: 5 MG, WEEKLY (1/W)
     Route: 065
  13. ZEPBOUND [Suspect]
     Active Substance: TIRZEPATIDE
     Dosage: 5 MG, WEEKLY (1/W)
     Route: 065
  14. ZEPBOUND [Suspect]
     Active Substance: TIRZEPATIDE
     Indication: Product used for unknown indication
     Dosage: 7.5 MG, WEEKLY (1/W)
     Route: 065
  15. ZEPBOUND [Suspect]
     Active Substance: TIRZEPATIDE
     Indication: Product used for unknown indication
     Dosage: 7.5 MG, WEEKLY (1/W)
     Route: 065
  16. ZEPBOUND [Suspect]
     Active Substance: TIRZEPATIDE
     Indication: Product used for unknown indication
     Dosage: 7.5 MG, WEEKLY (1/W)
     Route: 065
  17. ZEPBOUND [Suspect]
     Active Substance: TIRZEPATIDE
     Indication: Product used for unknown indication
     Dosage: 7.5 MG, WEEKLY (1/W)
     Route: 065

REACTIONS (5)
  - Weight increased [Unknown]
  - Incorrect dose administered [Unknown]
  - Incorrect dose administered [Unknown]
  - Injection site pain [Recovered/Resolved]
  - Injection site pain [Recovered/Resolved]

NARRATIVE: CASE EVENT DATE: 20240930
